FAERS Safety Report 11053957 (Version 1)
Quarter: 2015Q2

REPORT INFORMATION
  Report Type: Spontaneous
  Country: DE (occurrence: DE)
  Receive Date: 20150422
  Receipt Date: 20150422
  Transmission Date: 20150821
  Serious: Yes (Hospitalization)
  Sender: FDA-Public Use
  Company Number: DE-ROCHE-1566307

PATIENT
  Age: 67 Year
  Sex: Male

DRUGS (3)
  1. CYMEVENE [Suspect]
     Active Substance: GANCICLOVIR
     Indication: ANTIVIRAL PROPHYLAXIS
     Dosage: INITIAL DOSE
     Route: 042
  2. CYMEVENE [Suspect]
     Active Substance: GANCICLOVIR
     Indication: ANTIVIRAL PROPHYLAXIS
     Route: 048
  3. CYMEVENE [Suspect]
     Active Substance: GANCICLOVIR
     Dosage: MAINTENANCE DOSE
     Route: 042

REACTIONS (2)
  - Drug resistance [Unknown]
  - Sepsis [Unknown]
